FAERS Safety Report 7063038-4 (Version None)
Quarter: 2010Q4

REPORT INFORMATION
  Report Type: 
  Country: None (occurrence: None)
  Receive Date: 20101026
  Receipt Date: 20100624
  Transmission Date: 20110411
  Serious: No
  Sender: FDA-Public Use
  Company Number: US-PFIZER INC-2010024024

PATIENT
  Sex: Male
  Weight: 78.005 kg

DRUGS (3)
  1. LIPITOR [Suspect]
     Indication: LIPIDS ABNORMAL
     Dosage: 10 MG, DAILY, NIGHTLY
     Route: 048
     Dates: start: 20040815, end: 20090612
  2. LIPITOR [Suspect]
     Dosage: UNK
     Route: 048
     Dates: start: 20090801
  3. PRAVACHOL [Suspect]
     Dosage: UNK
     Dates: start: 20081001

REACTIONS (5)
  - BLOOD CHOLESTEROL INCREASED [None]
  - DRUG INEFFECTIVE [None]
  - LOW DENSITY LIPOPROTEIN INCREASED [None]
  - MUSCULOSKELETAL DISCOMFORT [None]
  - MYALGIA [None]
